FAERS Safety Report 21979509 (Version 1)
Quarter: 2023Q1

REPORT INFORMATION
  Report Type: Spontaneous
  Country: US (occurrence: None)
  Receive Date: 20230208
  Receipt Date: 20230208
  Transmission Date: 20230417
  Serious: No
  Sender: FDA-Public Use
  Company Number: None

PATIENT
  Sex: Female
  Weight: 80.74 kg

DRUGS (21)
  1. IBRANCE [Suspect]
     Active Substance: PALBOCICLIB
     Indication: Breast cancer
     Dates: start: 20170914, end: 20230208
  2. PROCHLORPERAZINE [Suspect]
     Active Substance: PROCHLORPERAZINE
     Indication: Breast cancer
     Dates: start: 20230208, end: 20230208
  3. ALLOPURINOL [Concomitant]
  4. ATORVASTATIN [Concomitant]
  5. DIGOXIN [Concomitant]
     Active Substance: DIGOXIN
  6. DYAZIDE [Concomitant]
     Active Substance: HYDROCHLOROTHIAZIDE\TRIAMTERENE
  7. FAMOTIDINE [Concomitant]
  8. FERROUS SULFATE [Concomitant]
  9. FLECAINIDE [Concomitant]
  10. FUROSEMIDE [Concomitant]
  11. LOSARTAN [Concomitant]
  12. MECLIZINE [Concomitant]
  13. METFORMIN [Concomitant]
     Active Substance: METFORMIN HYDROCHLORIDE
  14. ONDANSETRON [Concomitant]
  15. PANTOPRAZOLE [Concomitant]
  16. PROCHLORPERAZINE [Concomitant]
  17. SUCRALFATE [Concomitant]
  18. VENTOLIN HFA [Concomitant]
  19. VITAMIN B COMPLEX COMBINATIONS [Concomitant]
  20. VITAMIN D3 [Concomitant]
  21. GLIPIZIDE XL [Concomitant]

REACTIONS (1)
  - Hospice care [None]
